FAERS Safety Report 18888382 (Version 1)
Quarter: 2021Q1

REPORT INFORMATION
  Report Type: Spontaneous
  Country: US (occurrence: US)
  Receive Date: 20210212
  Receipt Date: 20210212
  Transmission Date: 20210420
  Serious: Yes (Other)
  Sender: FDA-Public Use
  Company Number: US-CELGENEUS-USA-20210202502

PATIENT
  Sex: Female

DRUGS (1)
  1. REVLIMID [Suspect]
     Active Substance: LENALIDOMIDE
     Indication: 5Q MINUS SYNDROME
     Dosage: 7.5 MILLIGRAM
     Route: 048
     Dates: start: 202101

REACTIONS (1)
  - Dementia Alzheimer^s type [Recovered/Resolved]

NARRATIVE: CASE EVENT DATE: 2021
